FAERS Safety Report 8273999-3 (Version None)
Quarter: 2012Q2

REPORT INFORMATION
  Report Type: 
  Country: None (occurrence: None)
  Receive Date: 20120411
  Receipt Date: 20120330
  Transmission Date: 20120825
  Serious: Yes (Death, Hospitalization)
  Sender: FDA-Public Use
  Company Number: JP-AMGEN-KDC432404

PATIENT
  Age: 46 Year
  Sex: Male
  Weight: 66 kg

DRUGS (16)
  1. FLUOROURACIL [Suspect]
     Route: 041
     Dates: start: 20100617, end: 20100722
  2. LANSOPRAZOLE [Concomitant]
     Route: 048
  3. METHYCOOL [Concomitant]
     Route: 048
  4. CORTICOSTEROIDS [Concomitant]
     Indication: PROPHYLAXIS
     Route: 065
  5. PANITUMUMAB [Suspect]
     Indication: COLORECTAL CANCER
     Dosage: 6 MG/KG, Q2WK
     Route: 041
     Dates: start: 20100617, end: 20100722
  6. FLUOROURACIL [Suspect]
     Indication: COLORECTAL CANCER
     Route: 040
     Dates: start: 20100617, end: 20100722
  7. MINOCYCLINE HYDROCHLORIDE [Concomitant]
     Dosage: UNK UNK, UNK
     Route: 048
  8. RAMELTEON [Concomitant]
     Route: 042
  9. DECADRON [Concomitant]
     Route: 042
  10. REBAMIPIDE [Concomitant]
     Route: 048
  11. LEVOLEUCOVORIN CALCIUM [Suspect]
     Indication: COLORECTAL CANCER
     Route: 041
     Dates: start: 20100617, end: 20100722
  12. EMEND [Concomitant]
     Route: 048
  13. POLARAMINE [Concomitant]
     Route: 042
  14. DAIKENTYUTO [Concomitant]
     Route: 048
  15. TOPOTECAN [Suspect]
     Indication: COLORECTAL CANCER
     Route: 041
     Dates: start: 20100617, end: 20100722
  16. ANTIHISTAMINES [Concomitant]
     Indication: PROPHYLAXIS
     Route: 065

REACTIONS (3)
  - WHITE BLOOD CELL COUNT DECREASED [None]
  - JAUNDICE [None]
  - HAEMATOCHEZIA [None]
